FAERS Safety Report 6355253-X (Version None)
Quarter: 2009Q3

REPORT INFORMATION
  Report Type: 
  Country: None (occurrence: None)
  Receive Date: 20090914
  Receipt Date: 20090911
  Transmission Date: 20100115
  Serious: No
  Sender: FDA-Public Use
  Company Number: US-B.I. PHARMACEUTICALS,INC./RIDGEFIELD-2009-BP-07641BP

PATIENT
  Age: 68 Year
  Sex: Male

DRUGS (5)
  1. MICARDIS [Suspect]
     Indication: HYPERTENSION
     Dosage: 20 MG
     Route: 048
     Dates: start: 20090501
  2. MICARDIS [Suspect]
     Dosage: 40 MG
     Route: 048
     Dates: start: 20090701, end: 20090701
  3. MICARDIS [Suspect]
     Dosage: 20 MG
     Route: 048
     Dates: start: 20090701, end: 20090701
  4. MICARDIS [Suspect]
     Dosage: 10 MG
     Route: 048
     Dates: start: 20090801
  5. DIAZIDE [Concomitant]
     Indication: HYPERTENSION

REACTIONS (2)
  - FATIGUE [None]
  - SOMNOLENCE [None]
